FAERS Safety Report 15951794 (Version 1)
Quarter: 2019Q1

REPORT INFORMATION
  Report Type: Spontaneous
  Country: US (occurrence: US)
  Receive Date: 20190212
  Receipt Date: 20190212
  Transmission Date: 20190417
  Serious: Yes (Hospitalization, Other)
  Sender: FDA-Public Use
  Company Number: US-BAXTER-2019BAX002767

PATIENT
  Age: 29 Year
  Sex: Female

DRUGS (18)
  1. METRONIDAZOLE INJECTION, USP [Suspect]
     Active Substance: METRONIDAZOLE
     Route: 065
     Dates: start: 201606
  2. METRONIDAZOLE. [Suspect]
     Active Substance: METRONIDAZOLE
     Indication: PERIRECTAL ABSCESS
  3. METRONIDAZOLE INJECTION, USP [Suspect]
     Active Substance: METRONIDAZOLE
     Indication: PERIRECTAL ABSCESS
     Dosage: MULTIPLE COURSES, OFF AND ON FROM DECEMBER 2015 TO JANUARY 2016
     Route: 065
     Dates: start: 201512, end: 201601
  4. METRONIDAZOLE INJECTION, USP [Suspect]
     Active Substance: METRONIDAZOLE
     Indication: BACTERIAL VAGINOSIS
     Route: 042
     Dates: start: 201606
  5. METRONIDAZOLE INJECTION, USP [Suspect]
     Active Substance: METRONIDAZOLE
     Indication: CLOSTRIDIUM DIFFICILE COLITIS
     Route: 065
     Dates: start: 201509, end: 201509
  6. CIPROFLOXACIN INJECTION, USP [Suspect]
     Active Substance: CIPROFLOXACIN
     Indication: DYSURIA
     Dosage: MULTIPLE COURSES OFF AND ON FROM DECEMBER 2015 TO JANUARY 2016
     Route: 065
     Dates: start: 201512, end: 201601
  7. CIPROFLOXACIN INJECTION, USP [Suspect]
     Active Substance: CIPROFLOXACIN
     Indication: PERIRECTAL ABSCESS
     Route: 065
     Dates: start: 201604, end: 201604
  8. CIPROFLOXACIN INJECTION, USP [Suspect]
     Active Substance: CIPROFLOXACIN
     Indication: PRODUCT USED FOR UNKNOWN INDICATION
     Route: 065
     Dates: start: 201509, end: 201509
  9. CLINDAMYCIN IN 0.9% SODIUM CHLORIDE INJECTION [Suspect]
     Active Substance: CLINDAMYCIN HYDROCHLORIDE
     Indication: CHRONIC TONSILLITIS
     Route: 065
     Dates: start: 201602
  10. FLUCONAZOLE. [Concomitant]
     Active Substance: FLUCONAZOLE
     Indication: VULVOVAGINAL CANDIDIASIS
     Route: 048
     Dates: start: 201603
  11. VANCOMYCIN [Suspect]
     Active Substance: VANCOMYCIN
     Indication: CLOSTRIDIUM DIFFICILE COLITIS
     Dosage: SHE WAS AGAIN PRESCRIBED VANCOMYCIN, WHICH THE PATIENT TOOK FOR OVER A MONTH
     Route: 048
  12. METRONIDAZOLE. [Suspect]
     Active Substance: METRONIDAZOLE
     Indication: BACTERIAL VAGINOSIS
     Route: 048
     Dates: start: 201603
  13. VANCOMYCIN [Suspect]
     Active Substance: VANCOMYCIN
     Route: 048
     Dates: start: 201606, end: 201606
  14. AZITHROMYCIN ANHYDROUS. [Concomitant]
     Active Substance: AZITHROMYCIN ANHYDROUS
     Route: 065
     Dates: start: 2015
  15. CLINDAMYCIN IN 0.9% SODIUM CHLORIDE INJECTION [Suspect]
     Active Substance: CLINDAMYCIN HYDROCHLORIDE
     Indication: PHARYNGITIS STREPTOCOCCAL
     Dosage: SINGLE DOSE
     Route: 065
     Dates: start: 201509
  16. CLINDAMYCIN IN 0.9% SODIUM CHLORIDE INJECTION [Suspect]
     Active Substance: CLINDAMYCIN HYDROCHLORIDE
     Indication: PERIRECTAL ABSCESS
     Route: 065
     Dates: start: 201511
  17. CIPROFLOXACIN. [Suspect]
     Active Substance: CIPROFLOXACIN
     Indication: PERIRECTAL ABSCESS
     Route: 048
     Dates: start: 2015
  18. AZITHROMYCIN ANHYDROUS. [Concomitant]
     Active Substance: AZITHROMYCIN ANHYDROUS
     Indication: PHARYNGITIS
     Route: 065
     Dates: start: 2015

REACTIONS (3)
  - Colitis [Recovered/Resolved]
  - Clostridium difficile colitis [Recovered/Resolved]
  - Condition aggravated [Recovered/Resolved]

NARRATIVE: CASE EVENT DATE: 201606
